FAERS Safety Report 6393231-5 (Version None)
Quarter: 2009Q4

REPORT INFORMATION
  Report Type: 
  Country: None (occurrence: None)
  Receive Date: 20091008
  Receipt Date: 20090930
  Transmission Date: 20100525
  Serious: Yes (Other)
  Sender: FDA-Public Use
  Company Number: US-JNJFOC-20090908896

PATIENT
  Age: 12 Month
  Sex: Male
  Weight: 12.7 kg

DRUGS (9)
  1. TYLENOL (CAPLET) [Suspect]
     Route: 048
     Dates: start: 20090907, end: 20090921
  2. TYLENOL (CAPLET) [Suspect]
     Indication: PYREXIA
     Dosage: 160 MG EVERY 4-6 HOURS
     Route: 048
     Dates: start: 20090907, end: 20090921
  3. CHILDREN'S MOTRIN [Concomitant]
     Indication: PYREXIA
  4. ZITHROMAX [Concomitant]
     Indication: PERTUSSIS
  5. NYSTATIN [Concomitant]
     Indication: FUNGAL INFECTION
  6. PREDNISONE TAB [Concomitant]
  7. ALBUTEROL [Concomitant]
     Indication: RESPIRATORY DISORDER
  8. PULMICORT [Concomitant]
     Indication: RESPIRATORY DISORDER
  9. AUGMENTIN [Concomitant]
     Dosage: TWICE

REACTIONS (9)
  - BLISTER [None]
  - DIARRHOEA [None]
  - EAR INFECTION [None]
  - FUNGAL SKIN INFECTION [None]
  - PERTUSSIS [None]
  - PNEUMONIA [None]
  - PYREXIA [None]
  - TRANSMISSION OF AN INFECTIOUS AGENT VIA A MEDICINAL PRODUCT [None]
  - VOMITING [None]
